FAERS Safety Report 7944443-8 (Version None)
Quarter: 2011Q4

REPORT INFORMATION
  Report Type: 
  Country: None (occurrence: None)
  Receive Date: 20111129
  Receipt Date: 20111117
  Transmission Date: 20120403
  Serious: Yes (Other)
  Sender: FDA-Public Use
  Company Number: GB-PAR PHARMACEUTICAL, INC-2011SCPR003445

PATIENT

DRUGS (1)
  1. METRONIDAZOLE [Suspect]
     Indication: WOUND INFECTION
     Dosage: UNK, UNKNOWN
     Route: 065

REACTIONS (2)
  - NEUROTOXICITY [None]
  - CENTRAL NERVOUS SYSTEM LESION [None]
